FAERS Safety Report 17949304 (Version 2)
Quarter: 2020Q3

REPORT INFORMATION
  Report Type: Spontaneous
  Country: US (occurrence: US)
  Receive Date: 20200625
  Receipt Date: 20200702
  Transmission Date: 20201103
  Serious: No
  Sender: FDA-Public Use
  Company Number: US-MTPC-MTDA2020-0055954

PATIENT
  Sex: Male

DRUGS (1)
  1. RADICAVA [Suspect]
     Active Substance: EDARAVONE
     Indication: AMYOTROPHIC LATERAL SCLEROSIS
     Dosage: 30 MILLIGRAM/100 MILLILITER, BID
     Route: 042
     Dates: start: 20181203

REACTIONS (3)
  - Condition aggravated [Unknown]
  - Gait inability [Unknown]
  - Impaired self-care [Unknown]
